FAERS Safety Report 6542374-1 (Version None)
Quarter: 2010Q1

REPORT INFORMATION
  Report Type: 
  Country: None (occurrence: None)
  Receive Date: 20100119
  Receipt Date: 20091214
  Transmission Date: 20100710
  Serious: Yes (Other)
  Sender: FDA-Public Use
  Company Number: US-BAYER-200921564NA

PATIENT
  Sex: Male
  Weight: 145 kg

DRUGS (6)
  1. MAGNEVIST [Suspect]
     Indication: NUCLEAR MAGNETIC RESONANCE IMAGING
     Dates: start: 20060511, end: 20060511
  2. UNSPECIFIED GADOLINIUM BASED CONTRAST AGENT [Suspect]
     Indication: NUCLEAR MAGNETIC RESONANCE IMAGING
     Dosage: AUG/SEP 1992
     Dates: start: 19920101, end: 19920101
  3. METHADONE [Concomitant]
  4. VALIUM [Concomitant]
  5. LANTUS [Concomitant]
  6. STEROID INJECTIONS [Concomitant]
     Indication: BACK PAIN
     Dosage: 10 INJECTIONS OVER THE YEARS
     Route: 008

REACTIONS (4)
  - ECZEMA [None]
  - ERYTHEMA [None]
  - NEPHROGENIC SYSTEMIC FIBROSIS [None]
  - OEDEMA PERIPHERAL [None]
